FAERS Safety Report 6206390-1 (Version None)
Quarter: 2009Q2

REPORT INFORMATION
  Report Type: 
  Country: None (occurrence: None)
  Receive Date: 20090528
  Receipt Date: 20090519
  Transmission Date: 20091009
  Serious: Yes (Other)
  Sender: FDA-Public Use
  Company Number: FR-BAYER-FR-2007-039069

PATIENT
  Age: 28 Year
  Sex: Female
  Weight: 56 kg

DRUGS (1)
  1. DROSPIRENONE AND ETHINYL ESTRADIOL [Suspect]
     Indication: ORAL CONTRACEPTION
     Dosage: 1 TAB(S), 21D/28D [DAILY DOSE: 1 TAB(S)]
     Route: 048
     Dates: start: 20020101, end: 20070930

REACTIONS (7)
  - ABNORMAL WITHDRAWAL BLEEDING [None]
  - AMENORRHOEA [None]
  - BREAST PAIN [None]
  - FORCEPS DELIVERY [None]
  - NAUSEA [None]
  - PREGNANCY ON ORAL CONTRACEPTIVE [None]
  - PREMATURE RUPTURE OF MEMBRANES [None]
